FAERS Safety Report 8820755 (Version 1)
Quarter: 2012Q4

REPORT INFORMATION
  Report Type: 
  Country: US (occurrence: US)
  Receive Date: 20121002
  Receipt Date: 20121002
  Transmission Date: 20130627
  Serious: Yes (Other)
  Sender: FDA-Public Use
  Company Number: US-PFIZER INC-2012239472

PATIENT
  Age: 80 Year
  Sex: Female

DRUGS (8)
  1. LIPITOR [Suspect]
     Dosage: 80 mg, 1x/day
     Dates: start: 20100826
  2. ACCUPRIL [Suspect]
     Dosage: 40 mg, 1x/day
     Dates: start: 20110110
  3. ZETIA [Concomitant]
     Dosage: 10 mg, 1x/day (1 Every day)
     Dates: start: 20120308
  4. NIACIN [Concomitant]
     Dosage: 500 mg, 1x/day (1 every day)
     Dates: start: 20081212
  5. AMLODIPINE BESYLATE [Concomitant]
     Dosage: 5 mg, 1x/day (every 1 day)
     Dates: start: 20110915
  6. ASPIRIN [Concomitant]
     Dosage: 81 mg, 1x/day (1 Every day)
     Dates: start: 20120109
  7. CALCIUM + VITAMIN D [Concomitant]
     Dosage: 500 mg, 1x/day (1 every day)
     Dates: start: 20110726
  8. FISH OIL [Concomitant]
     Dosage: 1000 mg, 1x/day (1 every day)
     Dates: start: 20110726

REACTIONS (4)
  - Inguinal hernia [Unknown]
  - Carpal tunnel syndrome [Unknown]
  - Anaemia [Unknown]
  - Iron deficiency anaemia [Unknown]
